FAERS Safety Report 7051668-5 (Version None)
Quarter: 2010Q4

REPORT INFORMATION
  Report Type: 
  Country: None (occurrence: None)
  Receive Date: 20101019
  Receipt Date: 20101011
  Transmission Date: 20110411
  Serious: Yes (Other)
  Sender: FDA-Public Use
  Company Number: US-ROCHE-732797

PATIENT
  Sex: Male
  Weight: 90.7 kg

DRUGS (2)
  1. PEGASYS [Suspect]
     Indication: HEPATITIS C
     Dosage: FORM: SYRINGE
     Route: 058
     Dates: start: 20100719
  2. COPEGUS [Suspect]
     Indication: HEPATITIS C
     Dosage: FORM: PILLS
     Route: 048
     Dates: start: 20100719

REACTIONS (6)
  - ANKLE FRACTURE [None]
  - CONTUSION [None]
  - DEPRESSION [None]
  - FALL [None]
  - MEDICATION ERROR [None]
  - PRODUCT QUALITY ISSUE [None]
